FAERS Safety Report 10302799 (Version 1)
Quarter: 2014Q3

REPORT INFORMATION
  Report Type: Report from Study
  Country: US (occurrence: US)
  Receive Date: 20140714
  Receipt Date: 20140714
  Transmission Date: 20150326
  Serious: Yes (Other)
  Sender: FDA-Public Use
  Company Number: PHHY2014US086242

PATIENT
  Sex: Female

DRUGS (6)
  1. BACLOFEN. [Concomitant]
     Active Substance: BACLOFEN
  2. CLONAZEPAM. [Concomitant]
     Active Substance: CLONAZEPAM
  3. GILENYA [Suspect]
     Active Substance: FINGOLIMOD HYDROCHLORIDE
     Indication: MULTIPLE SCLEROSIS
     Dosage: 0.5 MG, QD
     Route: 048
     Dates: start: 20110315
  4. LEXAPRO [Concomitant]
     Active Substance: ESCITALOPRAM OXALATE
  5. TOVIAZ [Concomitant]
     Active Substance: FESOTERODINE FUMARATE
  6. SANCTURA [Concomitant]
     Active Substance: TROSPIUM CHLORIDE

REACTIONS (1)
  - Deep vein thrombosis [Unknown]
